FAERS Safety Report 10086085 (Version 2)
Quarter: 2014Q2

REPORT INFORMATION
  Report Type: Report from Study
  Country: CA (occurrence: CA)
  Receive Date: 20140418
  Receipt Date: 20140507
  Transmission Date: 20141212
  Serious: Yes (Other)
  Sender: FDA-Public Use
  Company Number: CA-ABBVIE-14P-028-1225453-00

PATIENT
  Sex: Male
  Weight: 82.63 kg

DRUGS (1)
  1. LUPRON DEPOT [Suspect]
     Indication: PROSTATE CANCER
     Route: 030
     Dates: start: 20120725

REACTIONS (2)
  - Metastases to lymph nodes [Not Recovered/Not Resolved]
  - Metastases to spine [Not Recovered/Not Resolved]
